FAERS Safety Report 6714527-0 (Version None)
Quarter: 2010Q2

REPORT INFORMATION
  Report Type: 
  Country: None (occurrence: None)
  Receive Date: 20100506
  Receipt Date: 20100503
  Transmission Date: 20101027
  Serious: Yes (Life-Threatening, Hospitalization)
  Sender: FDA-Public Use
  Company Number: US-GILEAD-2010-0028892

PATIENT
  Sex: Female

DRUGS (20)
  1. LETAIRIS [Suspect]
     Indication: PULMONARY ARTERIAL HYPERTENSION
     Route: 048
     Dates: start: 20091218
  2. ASPIRIN [Concomitant]
  3. AMLODIPINE [Concomitant]
  4. CARVEDILOL [Concomitant]
  5. CRESTOR [Concomitant]
  6. PROAIR HFA [Concomitant]
  7. ADVAIR DISKUS 100/50 [Concomitant]
  8. ATROVENT [Concomitant]
  9. LORATADINE [Concomitant]
  10. CEPHALEXIN [Concomitant]
  11. NOVOLOG [Concomitant]
  12. LANTUS [Concomitant]
  13. GLIPIZIDE [Concomitant]
  14. ACARBOSE [Concomitant]
  15. BUPROPION HCL [Concomitant]
  16. AMITRIPTLINE HYDROCHLORIDE TAB [Concomitant]
  17. OMEPRAZOLE [Concomitant]
  18. CLOTRIMAZOLE [Concomitant]
  19. OXYCODONE HCL [Concomitant]
  20. A-Z MULTIVITAMIN [Concomitant]

REACTIONS (2)
  - CARDIAC FAILURE CONGESTIVE [None]
  - FLUID RETENTION [None]
